FAERS Safety Report 15130643 (Version 2)
Quarter: 2018Q4

REPORT INFORMATION
  Report Type: Spontaneous
  Country: US (occurrence: US)
  Receive Date: 20180711
  Receipt Date: 20181017
  Transmission Date: 20190204
  Serious: Yes (Hospitalization, Other)
  Sender: FDA-Public Use
  Company Number: US-PFIZER INC-2018278360

PATIENT
  Age: 75 Year
  Sex: Female
  Weight: 95.23 kg

DRUGS (4)
  1. LYRICA [Suspect]
     Active Substance: PREGABALIN
     Indication: NEUROPATHY PERIPHERAL
     Dosage: 75 MG, UNK
  2. LYRICA [Suspect]
     Active Substance: PREGABALIN
     Indication: BURNING SENSATION
     Dosage: UNK (3 TIMES)
  3. LYRICA [Suspect]
     Active Substance: PREGABALIN
     Dosage: UNK
     Dates: start: 20180703, end: 20180704
  4. VASOTEC [ENALAPRILAT] [Concomitant]
     Indication: HYPERTENSION
     Dosage: 5 MG, 2X/DAY

REACTIONS (2)
  - Seizure [Recovered/Resolved]
  - Malaise [Unknown]

NARRATIVE: CASE EVENT DATE: 20180704
